FAERS Safety Report 8380595-6 (Version None)
Quarter: 2012Q2

REPORT INFORMATION
  Report Type: 
  Country: None (occurrence: None)
  Receive Date: 20120523
  Receipt Date: 20120516
  Transmission Date: 20120825
  Serious: Yes (Hospitalization, Disabling, Other)
  Sender: FDA-Public Use
  Company Number: JP-ROCHE-801828

PATIENT
  Sex: Female

DRUGS (12)
  1. XELODA [Suspect]
     Indication: BREAST CANCER METASTATIC
     Route: 048
     Dates: start: 20070801, end: 20101212
  2. MUCOSTA [Concomitant]
     Route: 048
     Dates: end: 20101212
  3. TOCOPHEROL CONCENTRATE CAP [Concomitant]
     Route: 048
     Dates: end: 20101212
  4. CELESTAMINE TAB [Concomitant]
     Route: 048
     Dates: end: 20101212
  5. MELOXICAM [Concomitant]
     Route: 048
     Dates: end: 20101212
  6. CEFPIROME SULFATE [Suspect]
     Indication: PRODUCT USED FOR UNKNOWN INDICATION
     Route: 041
     Dates: start: 20101213, end: 20101220
  7. HIRUDOID [Concomitant]
     Route: 003
     Dates: end: 20101212
  8. CYCLOPHOSPHAMIDE [Suspect]
     Indication: PRODUCT USED FOR UNKNOWN INDICATION
     Route: 048
     Dates: start: 20100201, end: 20101212
  9. CYCLOPHOSPHAMIDE [Concomitant]
     Route: 065
  10. NEUROVITAN (UKRAINE) [Concomitant]
     Route: 048
     Dates: end: 20101212
  11. ATINES [Concomitant]
     Route: 048
     Dates: end: 20101212
  12. CEFPIROME SULFATE [Suspect]
     Route: 048
     Dates: end: 20101212

REACTIONS (6)
  - URINARY TRACT INFECTION [None]
  - ANAEMIA [None]
  - LEUKOENCEPHALOPATHY [None]
  - MENINGITIS BACTERIAL [None]
  - LIVER DISORDER [None]
  - UTERINE CANCER [None]
